FAERS Safety Report 6774119-4 (Version None)
Quarter: 2010Q2

REPORT INFORMATION
  Report Type: 
  Country: None (occurrence: None)
  Receive Date: 20100617
  Receipt Date: 20100608
  Transmission Date: 20101027
  Serious: Yes (Hospitalization, Other)
  Sender: FDA-Public Use
  Company Number: US-ASTRAZENECA-2010SE12414

PATIENT
  Sex: Female
  Weight: 56.2 kg

DRUGS (6)
  1. NEXIUM [Suspect]
     Indication: GASTROOESOPHAGEAL REFLUX DISEASE
     Route: 048
     Dates: start: 19970101
  2. MORPHINE [Concomitant]
  3. NORCO [Concomitant]
  4. CELEBREX [Concomitant]
  5. NITROGLYCERIN [Concomitant]
  6. DURAGESIC-100 [Concomitant]

REACTIONS (11)
  - CHEST PAIN [None]
  - CHOLELITHIASIS [None]
  - DYSPHAGIA [None]
  - DYSPNOEA [None]
  - GASTRIC MUCOSAL LESION [None]
  - GASTRITIS [None]
  - NEPHROLITHIASIS [None]
  - OESOPHAGEAL PAIN [None]
  - OESOPHAGEAL STENOSIS [None]
  - VOMITING [None]
  - WEIGHT DECREASED [None]
